FAERS Safety Report 21706350 (Version 1)
Quarter: 2022Q4

REPORT INFORMATION
  Report Type: Spontaneous
  Country: US (occurrence: None)
  Receive Date: 20221208
  Receipt Date: 20221208
  Transmission Date: 20230113
  Serious: No
  Sender: FDA-Public Use
  Company Number: None

PATIENT
  Age: 36 Year
  Sex: Male

DRUGS (1)
  1. BUPRENORPHINE HYDROCHLORIDE AND NALOXONE HYDROCHLORIDE [Suspect]
     Active Substance: BUPRENORPHINE HYDROCHLORIDE\NALOXONE HYDROCHLORIDE
     Indication: Drug dependence
     Dosage: OTHER QUANTITY : 1-3 TIMES DAILY; 8MG-2 MG?
     Route: 048

REACTIONS (6)
  - Drug intolerance [None]
  - Migraine [None]
  - Abdominal pain upper [None]
  - Abdominal distension [None]
  - Stomatitis [None]
  - Rash macular [None]
